FAERS Safety Report 5362267-5 (Version None)
Quarter: 2007Q2

REPORT INFORMATION
  Report Type: 
  Country: None (occurrence: None)
  Receive Date: 20070619
  Receipt Date: 20070607
  Transmission Date: 20071010
  Serious: Yes (Hospitalization, Other)
  Sender: FDA-Public Use
  Company Number: US-ELI_LILLY_AND_COMPANY-US200706001709

PATIENT
  Sex: Female

DRUGS (2)
  1. HUMULIN N [Suspect]
     Dates: start: 19770101
  2. HUMULIN R [Suspect]
     Dates: start: 19970101

REACTIONS (2)
  - BLINDNESS [None]
  - LOCALISED INFECTION [None]
